FAERS Safety Report 10355500 (Version 1)
Quarter: 2014Q3

REPORT INFORMATION
  Report Type: Spontaneous
  Country: US (occurrence: None)
  Receive Date: 20140728
  Receipt Date: 20140728
  Transmission Date: 20150326
  Serious: Yes (Other)
  Sender: FDA-Public Use
  Company Number: ADR-2014-01312

PATIENT
  Age: 9 Year
  Sex: Female

DRUGS (2)
  1. BOTULINUM TOXIN [Suspect]
     Active Substance: BOTULINUM TOXIN TYPE A
     Indication: MUSCLE SPASTICITY
  2. BACLOFEN (ORAL) [Suspect]
     Active Substance: BACLOFEN
     Indication: MUSCLE SPASTICITY

REACTIONS (7)
  - Pain [None]
  - Activities of daily living impaired [None]
  - Musculoskeletal disorder [None]
  - Muscle spasticity [None]
  - Fall [None]
  - Tibia fracture [None]
  - No therapeutic response [None]

NARRATIVE: CASE EVENT DATE: 20140627
